FAERS Safety Report 13524318 (Version 1)
Quarter: 2017Q2

REPORT INFORMATION
  Report Type: Spontaneous
  Country: US (occurrence: US)
  Receive Date: 20170508
  Receipt Date: 20170508
  Transmission Date: 20170830
  Serious: Yes (Hospitalization)
  Sender: FDA-Public Use
  Company Number: US-ABBVIE-17P-163-1960602-00

PATIENT
  Age: 7 Year
  Sex: Female

DRUGS (5)
  1. CLONAZEPAM. [Concomitant]
     Active Substance: CLONAZEPAM
     Indication: SEIZURE
     Route: 048
  2. HEMP OIL EXTRACT [Interacting]
     Active Substance: CANNABIS SATIVA SEED OIL
     Indication: SEIZURE
     Route: 065
  3. CLOBAZAM [Interacting]
     Active Substance: CLOBAZAM
     Indication: SEIZURE
     Route: 048
  4. VALPROATE SODIUM. [Suspect]
     Active Substance: VALPROATE SODIUM
     Indication: SEIZURE
     Route: 048
  5. LAMOTRIGINE. [Interacting]
     Active Substance: LAMOTRIGINE
     Indication: SEIZURE
     Route: 048

REACTIONS (4)
  - Anticonvulsant drug level increased [Recovered/Resolved]
  - Somnolence [Recovered/Resolved]
  - Drug interaction [Recovered/Resolved]
  - Gait disturbance [Recovered/Resolved]
